FAERS Safety Report 7611392 (Version 2)
Quarter: 2012Q4

REPORT INFORMATION
  Report Type: 
  Country: FR (occurrence: FR)
  Receive Date: 20100929
  Receipt Date: 20121226
  Transmission Date: 20130627
  Serious: Yes (Death, Disabling)
  Sender: FDA-Public Use
  Company Number: FR-ASTRAZENECA-2010SE44057

PATIENT
  Age: 79 Year
  Sex: Female

DRUGS (9)
  1. INEXIUM [Suspect]
     Indication: GASTROINTESTINAL HAEMORRHAGE
     Route: 048
     Dates: start: 20100531, end: 20100614
  2. CARBOPLATINE [Suspect]
     Indication: OVARIAN NEOPLASM
     Route: 042
     Dates: start: 20100402, end: 20100514
  3. PACLITAXEL [Suspect]
     Indication: OVARIAN NEOPLASM
     Route: 042
     Dates: start: 20100402, end: 20100514
  4. OFLOCET [Suspect]
     Route: 048
     Dates: start: 20100522, end: 20100530
  5. FLAGYL [Suspect]
     Route: 048
     Dates: start: 20100531, end: 20100617
  6. AUGMENTIN [Suspect]
     Route: 048
     Dates: start: 20100522, end: 20100605
  7. TARGOCID [Suspect]
     Route: 042
     Dates: start: 20100606, end: 20100617
  8. HYDROCORTISONE [Suspect]
     Route: 048
     Dates: start: 20100522, end: 20100530
  9. GENTAMICINE [Suspect]
     Dates: start: 20100606

REACTIONS (2)
  - Death [Fatal]
  - Neuropathy peripheral [Not Recovered/Not Resolved]
